FAERS Safety Report 7955551-X (Version None)
Quarter: 2011Q4

REPORT INFORMATION
  Report Type: 
  Country: None (occurrence: None)
  Receive Date: 20111202
  Receipt Date: 20111123
  Transmission Date: 20120403
  Serious: Yes (Death, Other)
  Sender: FDA-Public Use
  Company Number: DE-ROCHE-1013656

PATIENT

DRUGS (5)
  1. LEVOTHYROXINE SODIUM [Concomitant]
     Indication: HYPOTHYROIDISM
     Route: 048
     Dates: start: 20100301
  2. XELODA [Suspect]
     Indication: GASTRIC CANCER
     Route: 048
     Dates: start: 20110302, end: 20110406
  3. PRAVASTATIN [Concomitant]
     Indication: HYPERCHOLESTEROLAEMIA
     Route: 048
     Dates: start: 20100301
  4. ESIDRIX [Concomitant]
     Indication: HYPERTENSION
     Route: 048
     Dates: start: 20100301
  5. IRINOTECAN HCL [Suspect]
     Indication: GASTRIC CANCER
     Dosage: DOSE: 84 MG.
     Route: 042
     Dates: start: 20110302, end: 20110406

REACTIONS (4)
  - DIARRHOEA [None]
  - NEOPLASM MALIGNANT [None]
  - ORAL CANDIDIASIS [None]
  - MUCOSAL INFLAMMATION [None]
